FAERS Safety Report 7595256 (Version 5)
Quarter: 2013Q2

REPORT INFORMATION
  Report Type: Spontaneous
  Country: US (occurrence: US)
  Receive Date: 20100920
  Receipt Date: 20130530
  Transmission Date: 20140414
  Serious: Yes (Hospitalization, Other)
  Sender: FDA-Public Use
  Company Number: US-ASTRAZENECA-2010SE34067

PATIENT
  Age: 20151 Day
  Sex: Female
  Weight: 100.2 kg

DRUGS (13)
  1. SEROQUEL [Suspect]
     Indication: BIPOLAR DISORDER
     Route: 048
  2. SEROQUEL [Suspect]
     Indication: SLEEP DISORDER
     Route: 048
  3. SEROQUEL [Suspect]
     Indication: MOOD SWINGS
     Route: 048
  4. SEROQUEL [Suspect]
     Indication: BIPOLAR DISORDER
     Route: 048
  5. SEROQUEL [Suspect]
     Indication: SLEEP DISORDER
     Route: 048
  6. SEROQUEL [Suspect]
     Indication: MOOD SWINGS
     Route: 048
  7. SEROQUEL [Suspect]
     Indication: BIPOLAR DISORDER
     Route: 048
  8. SEROQUEL [Suspect]
     Indication: SLEEP DISORDER
     Route: 048
  9. SEROQUEL [Suspect]
     Indication: MOOD SWINGS
     Route: 048
  10. LISINOPRIL [Concomitant]
  11. ZANAX [Concomitant]
  12. PAXIL [Concomitant]
  13. PERCOCET [Concomitant]
     Indication: PAIN
     Dosage: 10/325 MG PRN

REACTIONS (23)
  - Cerebrovascular accident [Unknown]
  - Myocardial infarction [Unknown]
  - General physical condition abnormal [Unknown]
  - Convulsion [Unknown]
  - Feeling abnormal [Unknown]
  - Adverse event [Unknown]
  - Insomnia [Unknown]
  - Depersonalisation [Unknown]
  - Paranoia [Unknown]
  - Depression [Unknown]
  - Tachyphrenia [Unknown]
  - Visual impairment [Unknown]
  - Decreased appetite [Unknown]
  - Mental disorder [Unknown]
  - Malaise [Unknown]
  - Crying [Unknown]
  - Fear [Unknown]
  - Withdrawal syndrome [Unknown]
  - Deafness [Unknown]
  - Urinary tract infection [Not Recovered/Not Resolved]
  - Visual impairment [Unknown]
  - Off label use [Unknown]
  - Drug dose omission [Unknown]
